FAERS Safety Report 8549266-7 (Version None)
Quarter: 2012Q3

REPORT INFORMATION
  Report Type: 
  Country: None (occurrence: None)
  Receive Date: 20120730
  Receipt Date: 20120719
  Transmission Date: 20120928
  Serious: Yes (Disabling)
  Sender: FDA-Public Use
  Company Number: JP-VERTEX PHARMACEUTICALS INC.-AE-2012-010910

PATIENT
  Age: 60 Year
  Sex: Male

DRUGS (5)
  1. TELAVIC (TELAPREVIR) [Suspect]
     Indication: HEPATITIS C
     Route: 048
     Dates: start: 20120529, end: 20120531
  2. RIBAVIRIN [Concomitant]
     Route: 048
     Dates: start: 20120529
  3. URSO 250 [Concomitant]
     Route: 048
     Dates: start: 20120715
  4. PEGINTERFERON ALFA-2B [Concomitant]
     Indication: HEPATITIS C
     Route: 058
     Dates: start: 20120529
  5. TELAVIC (TELAPREVIR) [Suspect]
     Route: 048
     Dates: start: 20120601

REACTIONS (2)
  - RASH [None]
  - CHEILITIS [None]
